FAERS Safety Report 15376245 (Version 4)
Quarter: 2022Q1

REPORT INFORMATION
  Report Type: Spontaneous
  Country: CH (occurrence: CH)
  Receive Date: 20180912
  Receipt Date: 20220324
  Transmission Date: 20220423
  Serious: Yes (Life-Threatening, Hospitalization, Disabling, Other)
  Sender: FDA-Public Use
  Company Number: CH-FERRINGPH-2018FE05027

PATIENT

DRUGS (2)
  1. PICOPREP [Suspect]
     Active Substance: ANHYDROUS CITRIC ACID\MAGNESIUM OXIDE\SODIUM PICOSULFATE
     Indication: Bowel preparation
     Dosage: 2 DF
     Route: 048
     Dates: start: 20180627, end: 20180628
  2. ASPIRIN [Concomitant]
     Active Substance: ASPIRIN
     Indication: Autoimmune disorder
     Dosage: UNK
     Route: 065
     Dates: start: 1998, end: 201806

REACTIONS (11)
  - Fall [Recovered/Resolved]
  - Skull fracture [Not Recovered/Not Resolved]
  - Cerebellar haematoma [Recovering/Resolving]
  - Subarachnoid haemorrhage [Not Recovered/Not Resolved]
  - Olfactory nerve disorder [Not Recovered/Not Resolved]
  - Vertigo positional [Not Recovered/Not Resolved]
  - Anosmia [Not Recovered/Not Resolved]
  - Ageusia [Not Recovered/Not Resolved]
  - Spinal fracture [Unknown]
  - Syncope [Recovered/Resolved]
  - Treatment noncompliance [Recovered/Resolved]

NARRATIVE: CASE EVENT DATE: 20180627
